FAERS Safety Report 10064045 (Version 2)
Quarter: 2014Q2

REPORT INFORMATION
  Report Type: Report from Study
  Country: MX (occurrence: MX)
  Receive Date: 20140408
  Receipt Date: 20140414
  Transmission Date: 20141212
  Serious: Yes (Death, Hospitalization, Other)
  Sender: FDA-Public Use
  Company Number: MX-ORION CORPORATION ORION PHARMA-ENTC2014-0124

PATIENT
  Age: 83 Year
  Sex: Male

DRUGS (7)
  1. STALEVO [Suspect]
     Indication: PARKINSON^S DISEASE
     Dosage: STARTED WITH LOW DOSES
     Route: 048
  2. STALEVO [Suspect]
     Dosage: DOSE WAS INCREASED
     Route: 048
  3. CYMBALTA [Concomitant]
     Route: 065
  4. PEKAMER [Concomitant]
     Route: 065
  5. NORBRENZA [Concomitant]
     Route: 065
  6. EXELON [Concomitant]
     Indication: DEPRESSION
     Route: 065
     Dates: start: 201312
  7. EXELON [Concomitant]
     Indication: AMNESIA

REACTIONS (7)
  - Infarction [Fatal]
  - Pneumonia [Unknown]
  - Escherichia urinary tract infection [Unknown]
  - Mood altered [Unknown]
  - Irritability [Unknown]
  - Abnormal behaviour [Unknown]
  - Influenza [Unknown]
